FAERS Safety Report 4489674-7 (Version None)
Quarter: 2004Q4

REPORT INFORMATION
  Report Type: 
  Country: None (occurrence: None)
  Receive Date: 20041101
  Receipt Date: 20041026
  Transmission Date: 20050328
  Serious: Yes (Other)
  Sender: FDA-Public Use
  Company Number: PHBS2004IL14239

PATIENT
  Age: 62 Year
  Sex: Female

DRUGS (4)
  1. AREDIA [Suspect]
     Indication: MULTIPLE MYELOMA
     Dosage: 90 MG
     Route: 042
     Dates: start: 20001201, end: 20040701
  2. CYCLOPHOSPHAMIDE [Concomitant]
     Route: 065
  3. MELPHALAN [Concomitant]
     Route: 065
  4. VAT [Concomitant]

REACTIONS (4)
  - ABSCESS ORAL [None]
  - HYPERBARIC OXYGEN THERAPY [None]
  - OSTEOMYELITIS [None]
  - WOUND DEBRIDEMENT [None]
